FAERS Safety Report 8935187 (Version 1)
Quarter: 2012Q4

REPORT INFORMATION
  Report Type: 
  Country: KR (occurrence: KR)
  Receive Date: 20121129
  Receipt Date: 20121129
  Transmission Date: 20130627
  Serious: Yes (Other)
  Sender: FDA-Public Use
  Company Number: PHHY2012KR107957

PATIENT
  Age: 51 Year
  Sex: Male

DRUGS (1)
  1. METHAZOLAMIDE [Suspect]
     Indication: DIABETIC RETINAL OEDEMA
     Dosage: 100 mg daily
     Route: 048

REACTIONS (4)
  - Angle closure glaucoma [Recovered/Resolved]
  - Blindness [Recovered/Resolved]
  - Myopia [Recovered/Resolved]
  - Choroidal detachment [Recovered/Resolved]
